FAERS Safety Report 5749724-4 (Version None)
Quarter: 2008Q2

REPORT INFORMATION
  Report Type: 
  Country: None (occurrence: None)
  Receive Date: 20080527
  Receipt Date: 20080520
  Transmission Date: 20081010
  Serious: Yes (Other)
  Sender: FDA-Public Use
  Company Number: US-ASTRAZENECA-2008UW10455

PATIENT
  Age: 59 Year
  Sex: Female
  Weight: 56.7 kg

DRUGS (1)
  1. ARIMIDEX [Suspect]
     Indication: BREAST CANCER
     Route: 048
     Dates: start: 20070101

REACTIONS (3)
  - DIZZINESS [None]
  - MENISCUS LESION [None]
  - PAIN IN EXTREMITY [None]
